FAERS Safety Report 20490325 (Version 1)
Quarter: 2022Q1

REPORT INFORMATION
  Report Type: Spontaneous
  Country: SG (occurrence: SG)
  Receive Date: 20220218
  Receipt Date: 20220218
  Transmission Date: 20220423
  Serious: Yes (Hospitalization)
  Sender: FDA-Public Use
  Company Number: SG-SLATE RUN PHARMACEUTICALS-22SG000909

PATIENT

DRUGS (10)
  1. AZITHROMYCIN [Suspect]
     Active Substance: AZITHROMYCIN
     Indication: Maternal exposure during pregnancy
     Dosage: UNK
     Route: 015
  2. AZITHROMYCIN [Suspect]
     Active Substance: AZITHROMYCIN
     Dosage: UNK
     Route: 015
  3. UNSPECIFIED INGREDIENT [Concomitant]
     Active Substance: UNSPECIFIED INGREDIENT
     Indication: Maternal exposure during pregnancy
     Route: 015
  4. UNSPECIFIED INGREDIENT [Concomitant]
     Active Substance: UNSPECIFIED INGREDIENT
     Indication: Maternal exposure during pregnancy
     Route: 015
  5. FERINJECT [Concomitant]
     Active Substance: FERRIC CARBOXYMALTOSE
     Indication: Maternal exposure during pregnancy
     Route: 015
  6. IRON [Concomitant]
     Active Substance: IRON
     Indication: Maternal exposure during pregnancy
     Route: 015
  7. ENOXAPARIN [Concomitant]
     Active Substance: ENOXAPARIN
     Indication: Maternal exposure during pregnancy
     Dosage: UNK, QD
     Route: 015
  8. ENOXAPARIN [Concomitant]
     Active Substance: ENOXAPARIN
     Dosage: UNK, QD
     Route: 015
  9. AMPICILLIN [Concomitant]
     Active Substance: AMPICILLIN
     Indication: Maternal exposure during pregnancy
     Dosage: 500 MILLIGRAM, Q 6 HR
     Route: 015
  10. BETAMETHASONE [Concomitant]
     Active Substance: BETAMETHASONE
     Indication: Maternal therapy to enhance foetal lung maturity
     Route: 015

REACTIONS (4)
  - Premature baby [Unknown]
  - Apgar score low [Unknown]
  - Low birth weight baby [Unknown]
  - Foetal exposure during pregnancy [Unknown]
